FAERS Safety Report 9807644 (Version 4)
Quarter: 2014Q2

REPORT INFORMATION
  Report Type: Spontaneous
  Country: US (occurrence: US)
  Receive Date: 20140110
  Receipt Date: 20140522
  Transmission Date: 20141212
  Serious: Yes (Disabling)
  Sender: FDA-Public Use
  Company Number: US-009507513-1104USA02992

PATIENT
  Sex: Male
  Weight: 90.72 kg

DRUGS (2)
  1. PROPECIA [Suspect]
     Indication: ANDROGENETIC ALOPECIA
     Dosage: 1 MG, QD
     Route: 048
     Dates: start: 1998, end: 201012
  2. PROPECIA [Suspect]
     Indication: ALOPECIA

REACTIONS (25)
  - Anhedonia [Not Recovered/Not Resolved]
  - Emotional distress [Unknown]
  - Anxiety [Not Recovered/Not Resolved]
  - Libido decreased [Not Recovered/Not Resolved]
  - Erectile dysfunction [Not Recovered/Not Resolved]
  - Semen volume decreased [Recovering/Resolving]
  - Somnolence [Unknown]
  - Dermoid cyst [Unknown]
  - Bronchitis [Unknown]
  - Panic attack [Unknown]
  - Pain [Unknown]
  - Hyposmia [Recovering/Resolving]
  - Ejaculation failure [Unknown]
  - Hypogonadism [Unknown]
  - Depression [Not Recovered/Not Resolved]
  - Amnesia [Not Recovered/Not Resolved]
  - Fatigue [Unknown]
  - Muscular weakness [Unknown]
  - Exercise tolerance decreased [Unknown]
  - Hot flush [Unknown]
  - Myalgia [Unknown]
  - Weight fluctuation [Unknown]
  - Dry skin [Unknown]
  - Hypothalamo-pituitary disorder [Unknown]
  - Sleep apnoea syndrome [Unknown]
